FAERS Safety Report 4637864-2 (Version None)
Quarter: 2005Q2

REPORT INFORMATION
  Report Type: 
  Country: None (occurrence: None)
  Receive Date: 20050328
  Receipt Date: 20050126
  Transmission Date: 20051028
  Serious: No
  Sender: FDA-Public Use
  Company Number: US_0502112131

PATIENT
  Age: 16 Year
  Sex: Male
  Weight: 85 kg

DRUGS (2)
  1. STRATTERA [Suspect]
     Indication: ATTENTION DEFICIT/HYPERACTIVITY DISORDER
     Dosage: 80 MG IN THE MORNING
     Dates: start: 20040101
  2. DEXEDRINE [Concomitant]

REACTIONS (1)
  - THROAT IRRITATION [None]
